FAERS Safety Report 11050761 (Version 1)
Quarter: 2015Q2

REPORT INFORMATION
  Report Type: Spontaneous
  Country: None (occurrence: None)
  Receive Date: 20150420
  Receipt Date: 20150420
  Transmission Date: 20150821
  Serious: Yes (Other)
  Sender: FDA-Public Use
  Company Number: None

PATIENT
  Age: 61 Year
  Sex: Female
  Weight: 81.65 kg

DRUGS (1)
  1. CIPROFLOXACIN. [Suspect]
     Active Substance: CIPROFLOXACIN
     Indication: DIVERTICULITIS
     Dosage: 1 TABLET, 4 DAYS TOTAL
     Route: 048

REACTIONS (3)
  - Therapy cessation [None]
  - Burning sensation [None]
  - Dysaesthesia [None]

NARRATIVE: CASE EVENT DATE: 20150416
